FAERS Safety Report 7759980-9 (Version None)
Quarter: 2011Q3

REPORT INFORMATION
  Report Type: 
  Country: None (occurrence: None)
  Receive Date: 20110919
  Receipt Date: 20110915
  Transmission Date: 20111222
  Serious: Yes (Hospitalization)
  Sender: FDA-Public Use
  Company Number: SE-MERCK-1109SWE00011

PATIENT
  Age: 86 Year
  Sex: Female

DRUGS (16)
  1. SODIUM PICOSULFATE [Concomitant]
     Route: 048
  2. PREDNISOLONE [Concomitant]
     Route: 048
  3. FUROSEMIDE [Concomitant]
     Route: 048
  4. ASPIRIN [Concomitant]
     Route: 048
  5. ESTRADIOL [Concomitant]
     Route: 065
  6. NITROGLYCERIN [Concomitant]
     Route: 060
  7. CALCIUM CARBONATE AND CHOLECALCIFEROL [Concomitant]
     Route: 048
  8. FUROSEMIDE [Concomitant]
     Route: 048
  9. ALBUTEROL SULFATE [Concomitant]
     Route: 055
  10. FOSAMAX [Suspect]
     Indication: OSTEOPOROSIS
     Route: 048
     Dates: start: 20051201, end: 20080818
  11. OMEPRAZOLE [Concomitant]
     Route: 065
  12. METOPROLOL SUCCINATE [Concomitant]
     Route: 048
  13. ACETAMINOPHEN [Concomitant]
     Route: 048
  14. CYANOCOBALAMIN [Concomitant]
     Route: 048
  15. ISOSORBIDE MONONITRATE [Concomitant]
     Route: 048
  16. LACTULOSE [Concomitant]
     Route: 065

REACTIONS (1)
  - PATHOLOGICAL FRACTURE [None]
